FAERS Safety Report 6793115-4 (Version None)
Quarter: 2010Q2

REPORT INFORMATION
  Report Type: 
  Country: None (occurrence: None)
  Receive Date: 20100624
  Receipt Date: 20090605
  Transmission Date: 20101027
  Serious: Yes (Other)
  Sender: FDA-Public Use
  Company Number: US-MYLANLABS-2009S1008851

PATIENT
  Age: 43 Year
  Sex: Female

DRUGS (4)
  1. CLOZAPINE [Suspect]
     Indication: SCHIZOAFFECTIVE DISORDER
     Route: 048
     Dates: start: 20080705, end: 20090503
  2. CLOZAPINE [Suspect]
     Route: 048
  3. PRISTIQ [Concomitant]
  4. WELLBUTRIN [Concomitant]

REACTIONS (1)
  - GRANULOCYTOPENIA [None]
